FAERS Safety Report 16610769 (Version 2)
Quarter: 2019Q3

REPORT INFORMATION
  Report Type: Report from Study
  Country: None (occurrence: US)
  Receive Date: 20190722
  Receipt Date: 20190726
  Transmission Date: 20191004
  Serious: Yes (Hospitalization, Other)
  Sender: FDA-Public Use
  Company Number: US-BIOVITRUM-2019US0756

PATIENT
  Sex: Male

DRUGS (3)
  1. ULORIC [Concomitant]
     Active Substance: FEBUXOSTAT
  2. PROCRIT INJECTIONS [Concomitant]
  3. KINERET [Suspect]
     Active Substance: ANAKINRA
     Indication: GOUT
     Route: 058
     Dates: start: 20190308

REACTIONS (6)
  - Constipation [Unknown]
  - Infection [Unknown]
  - Urinary tract infection [Recovered/Resolved]
  - Renal impairment [Unknown]
  - Memory impairment [Unknown]
  - Off label use [Not Recovered/Not Resolved]
